FAERS Safety Report 17900754 (Version 1)
Quarter: 2020Q2

REPORT INFORMATION
  Report Type: Spontaneous
  Country: BG (occurrence: BG)
  Receive Date: 20200616
  Receipt Date: 20200616
  Transmission Date: 20200714
  Serious: Yes (Hospitalization, Other)
  Sender: FDA-Public Use
  Company Number: BG-ASTRAZENECA-2020SE74686

PATIENT
  Sex: Female

DRUGS (1)
  1. TAGRISSO [Suspect]
     Active Substance: OSIMERTINIB
     Indication: DRUG THERAPY
     Route: 048

REACTIONS (2)
  - Cardiotoxicity [Unknown]
  - Weight decreased [Unknown]

NARRATIVE: CASE EVENT DATE: 20200608
